FAERS Safety Report 8143302 (Version 3)
Quarter: 2013Q4

REPORT INFORMATION
  Report Type: Spontaneous
  Country: JP (occurrence: JP)
  Receive Date: 20110920
  Receipt Date: 20131203
  Transmission Date: 20140711
  Serious: Yes (Hospitalization, Other)
  Sender: FDA-Public Use
  Company Number: JP-BAYER-2011-087776

PATIENT
  Age: 75 Year
  Sex: Male

DRUGS (14)
  1. NEXAVAR [Suspect]
     Indication: HEPATOCELLULAR CARCINOMA
     Dosage: DAILY DOSE 200 MG
     Route: 048
     Dates: start: 20110627, end: 20110710
  2. NEXAVAR [Suspect]
     Indication: HEPATOCELLULAR CARCINOMA
     Dosage: DAILY DOSE 400 MG
     Route: 048
     Dates: start: 20110711, end: 20110712
  3. NEXAVAR [Suspect]
     Indication: HEPATOCELLULAR CARCINOMA
     Dosage: 200 MG OR 400 MG ALTERNATELY
     Dates: start: 20110713
  4. NEXAVAR [Suspect]
     Indication: HEPATOCELLULAR CARCINOMA
     Dosage: UNK
     Dates: end: 20130909
  5. NEXAVAR [Suspect]
     Indication: HEPATOCELLULAR CARCINOMA
     Dosage: 200 MG OR 400 MG ALTERNATELY
     Dates: end: 20130916
  6. NEXAVAR [Suspect]
     Indication: HEPATOCELLULAR CARCINOMA
     Dosage: 200 MG, QD
     Route: 048
     Dates: start: 20131004
  7. NORVASC [Concomitant]
     Dosage: DAILY DOSE 5 MG
     Route: 048
  8. URSO [Concomitant]
     Dosage: DAILY DOSE 600 MG
     Route: 048
  9. VITAMIN K2 [Concomitant]
     Dosage: UNK
     Route: 065
  10. ALLEGRA [Concomitant]
     Dosage: DAILY DOSE 120 MG
     Route: 048
  11. OLMETEC [Concomitant]
     Dosage: DAILY DOSE 40 MG
     Route: 048
  12. CARDENALIN [Concomitant]
     Dosage: DAILY DOSE 4 MG
     Route: 048
  13. CASODEX [Concomitant]
     Dosage: DAILY DOSE 80 MG
     Route: 048
  14. NUTRITIONAL SUPPLEMENT [Concomitant]
     Dosage: DAILY DOSE 3 G
     Route: 048

REACTIONS (2)
  - Blood creatine phosphokinase increased [Recovered/Resolved]
  - Renal impairment [Recovering/Resolving]
